FAERS Safety Report 8766406 (Version 2)
Quarter: 2012Q4

REPORT INFORMATION
  Report Type: 
  Country: JP (occurrence: JP)
  Receive Date: 20120904
  Receipt Date: 20121001
  Transmission Date: 20130627
  Serious: Yes (Other)
  Sender: FDA-Public Use
  Company Number: PHHY2012JP076051

PATIENT
  Age: 71 Year

DRUGS (2)
  1. TEGRETOL [Suspect]
     Dosage: 200 mg, once daily before going to bed
     Route: 048
  2. HYDANTOL [Concomitant]
     Dosage: 1 DF, once daily before going to bed
     Route: 048

REACTIONS (1)
  - Ileus [Unknown]
